FAERS Safety Report 5510584-8 (Version None)
Quarter: 2007Q4

REPORT INFORMATION
  Report Type: 
  Country: None (occurrence: None)
  Receive Date: 20071108
  Receipt Date: 20071101
  Transmission Date: 20080405
  Serious: Yes (Other)
  Sender: FDA-Public Use
  Company Number: US-ELI_LILLY_AND_COMPANY-US200710002753

PATIENT
  Sex: Male

DRUGS (3)
  1. HUMALOG [Suspect]
  2. HUMULIN N [Suspect]
  3. HUMULIN 70/30 [Suspect]
     Dosage: UNK, UNK

REACTIONS (7)
  - BLOOD GLUCOSE DECREASED [None]
  - CATARACT [None]
  - DIABETIC RETINOPATHY [None]
  - DIZZINESS [None]
  - EYE DISORDER [None]
  - RETINAL HAEMORRHAGE [None]
  - RETINAL OEDEMA [None]
